FAERS Safety Report 24633895 (Version 1)
Quarter: 2024Q4

REPORT INFORMATION
  Report Type: Report from Study
  Country: US (occurrence: US)
  Receive Date: 20241118
  Receipt Date: 20241118
  Transmission Date: 20250115
  Serious: No
  Sender: SUNOVION
  Company Number: US-SMPA-2024SPA003397AA

PATIENT

DRUGS (1)
  1. ORGOVYX [Suspect]
     Active Substance: RELUGOLIX
     Indication: Prostate cancer
     Dosage: 120 MG, QD
     Route: 048
     Dates: start: 20240419

REACTIONS (5)
  - Muscle spasms [Unknown]
  - Muscular weakness [Unknown]
  - Malaise [Unknown]
  - Fatigue [Unknown]
  - Therapy interrupted [Unknown]
